FAERS Safety Report 10175721 (Version 1)
Quarter: 2014Q2

REPORT INFORMATION
  Report Type: Spontaneous
  Country: US (occurrence: US)
  Receive Date: 20140516
  Receipt Date: 20140516
  Transmission Date: 20141212
  Serious: Yes (Other)
  Sender: FDA-Public Use
  Company Number: US-JNJFOC-20140504458

PATIENT
  Sex: Female
  Weight: 79.38 kg

DRUGS (2)
  1. RISPERDAL [Suspect]
     Indication: SCHIZOPHRENIA
     Dosage: FROM 6 MG TABLET
     Route: 048
     Dates: start: 2009, end: 2010
  2. VITAMIN C [Concomitant]
     Route: 065

REACTIONS (8)
  - Abnormal loss of weight [Recovered/Resolved]
  - Ketosis [Recovered/Resolved]
  - Loss of consciousness [Recovered/Resolved]
  - Weight increased [Not Recovered/Not Resolved]
  - Fat tissue decreased [Recovered/Resolved]
  - Abnormal dreams [Recovered/Resolved]
  - Hypersensitivity [Unknown]
  - Fluid retention [Recovered/Resolved]
